FAERS Safety Report 10621913 (Version 1)
Quarter: 2014Q4

REPORT INFORMATION
  Report Type: Spontaneous
  Country: NO (occurrence: NO)
  Receive Date: 20141203
  Receipt Date: 20141203
  Transmission Date: 20150529
  Serious: Yes (Death)
  Sender: FDA-Public Use
  Company Number: NO-JNJFOC-20141113705

PATIENT
  Sex: Female

DRUGS (3)
  1. CAELYX [Suspect]
     Active Substance: DOXORUBICIN HYDROCHLORIDE
     Indication: SMALL CELL LUNG CANCER METASTATIC
     Route: 041
  2. VINCRISTINE [Suspect]
     Active Substance: VINCRISTINE
     Indication: SMALL CELL LUNG CANCER METASTATIC
     Route: 041
  3. SENDOXAN [Suspect]
     Active Substance: CYCLOPHOSPHAMIDE
     Indication: SMALL CELL LUNG CANCER METASTATIC
     Route: 041

REACTIONS (5)
  - Haemoptysis [Fatal]
  - Off label use [Unknown]
  - Neutropenic sepsis [Fatal]
  - Leukopenia [Unknown]
  - Thrombocytopenia [Unknown]
